FAERS Safety Report 7799539-0 (Version None)
Quarter: 2011Q4

REPORT INFORMATION
  Report Type: 
  Country: None (occurrence: None)
  Receive Date: 20111006
  Receipt Date: 20111006
  Transmission Date: 20120403
  Serious: Yes (Life-Threatening)
  Sender: FDA-Public Use
  Company Number: None

PATIENT
  Age: 27 Year
  Sex: Female
  Weight: 64.2 kg

DRUGS (1)
  1. GADOPENTETATE [Suspect]
     Indication: SCAN WITH CONTRAST
     Dosage: 12 ML
     Route: 040
     Dates: start: 20110930, end: 20110930

REACTIONS (5)
  - CONTRAST MEDIA REACTION [None]
  - COUGH [None]
  - FEELING ABNORMAL [None]
  - NAUSEA [None]
  - HEART RATE INCREASED [None]
